FAERS Safety Report 9195818 (Version 1)
Quarter: 2013Q1

REPORT INFORMATION
  Report Type: Spontaneous
  Country: US (occurrence: None)
  Receive Date: 20120703
  Receipt Date: 20120703
  Transmission Date: 20140127
  Serious: No
  Sender: FDA-Public Use
  Company Number: PHEH2012US010489

PATIENT
  Age: 47 Year
  Sex: Male
  Weight: 104.3 kg

DRUGS (6)
  1. GILENYA [Suspect]
     Indication: MULTIPLE SCLEROSIS
     Route: 048
     Dates: start: 20120518
  2. CLARITIN-D 12 HOUR [Concomitant]
  3. LAXAPRO (ESCITALOPRAM OXALATE) [Concomitant]
  4. AVONEX (INTERFERON BETA-1A) [Concomitant]
  5. VITAMINS (NO INGREDIENTS/SUBSTANCES) [Concomitant]
  6. ANTIHISTAMINES (NO INGREDIENTS/SUBSTANCES) [Concomitant]

REACTIONS (2)
  - Feeling abnormal [None]
  - Heart rate decreased [None]
